FAERS Safety Report 19706973 (Version 6)
Quarter: 2021Q4

REPORT INFORMATION
  Report Type: Report from Study
  Country: FR (occurrence: FR)
  Receive Date: 20210817
  Receipt Date: 20211006
  Transmission Date: 20220303
  Serious: Yes (Other)
  Sender: FDA-Public Use
  Company Number: FR-002147023-NVSC2021FR039128

PATIENT
  Age: 67 Year
  Sex: Male
  Weight: 82 kg

DRUGS (24)
  1. METFORMIN [Suspect]
     Active Substance: METFORMIN HYDROCHLORIDE
     Indication: Steroid diabetes
     Dosage: 1000 MILLIGRAM, QD (500 MG, BID )
     Route: 065
     Dates: start: 20200813, end: 20200815
  2. METHYLPREDNISOLONE [Suspect]
     Active Substance: METHYLPREDNISOLONE
     Indication: Renal transplant
     Dosage: 500 MILLIGRAM
     Route: 042
     Dates: start: 20200206, end: 20200206
  3. METHYLPREDNISOLONE [Suspect]
     Active Substance: METHYLPREDNISOLONE
     Dosage: 120 MILLIGRAM
     Route: 042
     Dates: start: 20200207, end: 20200207
  4. METHYLPREDNISOLONE [Suspect]
     Active Substance: METHYLPREDNISOLONE
     Dosage: 20 MILLIGRAM
     Route: 065
     Dates: start: 20200208, end: 20200208
  5. TACROLIMUS [Suspect]
     Active Substance: TACROLIMUS
     Indication: Renal transplant
     Dosage: 5.5 MG
     Route: 048
     Dates: start: 20200206
  6. TACROLIMUS [Suspect]
     Active Substance: TACROLIMUS
     Dosage: 6 MILLIGRAM
     Route: 048
     Dates: start: 20200210, end: 20200212
  7. TACROLIMUS [Suspect]
     Active Substance: TACROLIMUS
     Dosage: 7 MILLIGRAM
     Route: 048
     Dates: start: 20200209, end: 20200210
  8. TACROLIMUS [Suspect]
     Active Substance: TACROLIMUS
     Dosage: 6 MILLIGRAM
     Route: 048
     Dates: start: 20200208, end: 20200209
  9. TACROLIMUS [Suspect]
     Active Substance: TACROLIMUS
     Dosage: 5.5 MILLIGRAM
     Route: 048
     Dates: start: 20200212, end: 20200213
  10. TACROLIMUS [Suspect]
     Active Substance: TACROLIMUS
     Dosage: 6 MILLIGRAM
     Route: 048
     Dates: start: 20200206, end: 20200207
  11. TACROLIMUS [Suspect]
     Active Substance: TACROLIMUS
     Dosage: 12 MILLIGRAM
     Route: 048
     Dates: start: 20200207, end: 20200208
  12. TACROLIMUS [Suspect]
     Active Substance: TACROLIMUS
     Dosage: 5 MILLIGRAM
     Route: 048
     Dates: start: 20200213
  13. TACROLIMUS [Suspect]
     Active Substance: TACROLIMUS
     Dosage: 5 MILLIGRAM
     Route: 048
     Dates: start: 20200206, end: 20200207
  14. TACROLIMUS [Suspect]
     Active Substance: TACROLIMUS
     Dosage: 5.5 MILLIGRAM (3 MG EVERY MORNING AND 2.5 MG EVERY EVENING)
     Route: 065
  15. CALCIUM [Concomitant]
     Active Substance: CALCIUM
     Indication: Product used for unknown indication
     Dosage: UNK
     Route: 065
     Dates: start: 20200209
  16. BACTRIM [Concomitant]
     Active Substance: SULFAMETHOXAZOLE\TRIMETHOPRIM
     Indication: Product used for unknown indication
     Dosage: UNK
     Route: 065
     Dates: start: 20200208
  17. HEPARIN CALCIUM [Concomitant]
     Active Substance: HEPARIN CALCIUM
     Indication: Product used for unknown indication
     Dosage: UNK
     Route: 065
     Dates: start: 20200206
  18. BISOPROLOL [Concomitant]
     Active Substance: BISOPROLOL
     Indication: Product used for unknown indication
     Dosage: UNK
     Route: 065
     Dates: start: 20200206
  19. INSULIN GLARGINE [Concomitant]
     Active Substance: INSULIN GLARGINE
     Indication: Product used for unknown indication
     Dosage: UNK
     Route: 065
     Dates: start: 20200209
  20. PANTOPRAZOLE [Concomitant]
     Active Substance: PANTOPRAZOLE
     Indication: Product used for unknown indication
     Dosage: UNK
     Route: 065
     Dates: start: 20200206
  21. PREDNISONE [Concomitant]
     Active Substance: PREDNISONE
     Indication: Product used for unknown indication
     Dosage: UNK
     Route: 065
     Dates: start: 20200213
  22. BROMAZEPAM [Concomitant]
     Active Substance: BROMAZEPAM
     Indication: Product used for unknown indication
     Dosage: UNK
     Route: 065
     Dates: start: 20200206
  23. NOVORAPID [Concomitant]
     Active Substance: INSULIN ASPART
     Indication: Product used for unknown indication
     Dosage: UNK
     Route: 065
     Dates: start: 20200206
  24. MYCOPHENOLATE MOFETIL [Concomitant]
     Active Substance: MYCOPHENOLATE MOFETIL
     Indication: Product used for unknown indication
     Dosage: UNK
     Route: 065
     Dates: start: 20200206

REACTIONS (15)
  - Diabetes mellitus [Recovering/Resolving]
  - Steroid diabetes [Recovering/Resolving]
  - Diarrhoea [Recovered/Resolved]
  - Proteinuria [Recovered/Resolved]
  - Dyslipidaemia [Recovered/Resolved]
  - Bone density decreased [Unknown]
  - Abdominal pain upper [Recovered/Resolved]
  - Hepatic steatosis [Not Recovered/Not Resolved]
  - Hypomagnesaemia [Not Recovered/Not Resolved]
  - Bronchitis [Recovered/Resolved]
  - Vitamin D deficiency [Not Recovered/Not Resolved]
  - Transferrin saturation decreased [Not Recovered/Not Resolved]
  - Blood lactate dehydrogenase increased [Not Recovered/Not Resolved]
  - Serum ferritin increased [Not Recovered/Not Resolved]
  - Product use in unapproved indication [Unknown]

NARRATIVE: CASE EVENT DATE: 20200212
